FAERS Safety Report 12057399 (Version 1)
Quarter: 2016Q1

REPORT INFORMATION
  Report Type: Spontaneous
  Country: US (occurrence: US)
  Receive Date: 20160210
  Receipt Date: 20160210
  Transmission Date: 20160526
  Serious: Yes (Other)
  Sender: FDA-Public Use
  Company Number: US-PFIZER INC-2016061400

PATIENT
  Age: 67 Year
  Sex: Female
  Weight: 103 kg

DRUGS (3)
  1. LYRICA [Suspect]
     Active Substance: PREGABALIN
     Dosage: 50 MG, 3X/DAY (MORNING AFTERNOON AND EVENING)
  2. ATORVASTATIN CALCIUM. [Concomitant]
     Active Substance: ATORVASTATIN CALCIUM
     Dosage: 20 MG, 1X/DAY (AT BEDTIME)
  3. TRIAMTERENE-HCTZ [Concomitant]
     Active Substance: HYDROCHLOROTHIAZIDE\TRIAMTERENE
     Dosage: 2 DF, DAILY
     Route: 048

REACTIONS (13)
  - Cerumen impaction [Unknown]
  - Ovarian neoplasm [Unknown]
  - Dyslipidaemia [Unknown]
  - Invasive ductal breast carcinoma [Unknown]
  - Oedema peripheral [Unknown]
  - Diverticulum [Unknown]
  - Fibrous histiocytoma [Unknown]
  - Hypothyroidism [Unknown]
  - Anaemia [Unknown]
  - Neuropathy peripheral [Unknown]
  - Pelvic mass [Unknown]
  - Colon cancer [Unknown]
  - Melanocytic naevus [Unknown]
